FAERS Safety Report 15037997 (Version 1)
Quarter: 2018Q2

REPORT INFORMATION
  Report Type: Spontaneous
  Country: JP (occurrence: JP)
  Receive Date: 20180620
  Receipt Date: 20180620
  Transmission Date: 20180711
  Serious: Yes (Hospitalization, Other)
  Sender: FDA-Public Use
  Company Number: JP-SHIRE-JP201821767

PATIENT

DRUGS (7)
  1. CALCIUM CARBIMIDE [Concomitant]
     Active Substance: CALCIUM CARBIMIDE
  2. RENAGEL [Concomitant]
     Active Substance: SEVELAMER HYDROCHLORIDE
  3. FOSRENOL [Suspect]
     Active Substance: LANTHANUM CARBONATE
     Indication: PRODUCT USED FOR UNKNOWN INDICATION
     Route: 048
  4. PHOSBLOCK [Concomitant]
     Active Substance: FERRIC HYDROXIDE
  5. KIKLIN [Concomitant]
     Active Substance: BIXALOMER
  6. FERRIC CITRATE [Concomitant]
     Active Substance: TETRAFERRIC TRICITRATE DECAHYDRATE
  7. FERRUM                             /00023550/ [Concomitant]

REACTIONS (3)
  - Intestinal ischaemia [Unknown]
  - Acute abdomen [Unknown]
  - Medication residue present [Unknown]
